FAERS Safety Report 12588237 (Version 1)
Quarter: 2016Q3

REPORT INFORMATION
  Report Type: Spontaneous
  Country: US (occurrence: US)
  Receive Date: 20160725
  Receipt Date: 20160725
  Transmission Date: 20161109
  Serious: No
  Sender: FDA-Public Use
  Company Number: US-JNJFOC-20160500817

PATIENT
  Age: 75 Year
  Sex: Female
  Weight: 48.99 kg

DRUGS (2)
  1. CHILDRENS ZYRTEC ALLERGY [Suspect]
     Active Substance: CETIRIZINE HYDROCHLORIDE
     Route: 048
  2. CHILDRENS ZYRTEC ALLERGY [Suspect]
     Active Substance: CETIRIZINE HYDROCHLORIDE
     Indication: COUGH
     Dosage: TAKEN FOR 6 DAYS
     Route: 048

REACTIONS (3)
  - Dry eye [Unknown]
  - Drug ineffective for unapproved indication [Unknown]
  - Off label use [Unknown]
